FAERS Safety Report 7787597-9 (Version None)
Quarter: 2011Q3

REPORT INFORMATION
  Report Type: 
  Country: None (occurrence: None)
  Receive Date: 20110929
  Receipt Date: 20110922
  Transmission Date: 20111222
  Serious: Yes (Other)
  Sender: FDA-Public Use
  Company Number: GR-AMGEN-GRCSP2011034714

PATIENT
  Age: 83 Year
  Sex: Male

DRUGS (4)
  1. NPLATE [Suspect]
     Indication: AUTOIMMUNE THROMBOCYTOPENIA
     Dosage: 1 MUG/KG, UNK
  2. PREDNISOLONE [Concomitant]
     Dosage: 50 MG, QD
  3. ACETYLSALICYLIC ACID [Concomitant]
  4. NPLATE [Suspect]
     Dosage: 3 MG/KG, UNK

REACTIONS (1)
  - PLATELET COUNT INCREASED [None]
